FAERS Safety Report 8982118 (Version 2)
Quarter: 2013Q1

REPORT INFORMATION
  Report Type: Spontaneous
  Country: DE (occurrence: DE)
  Receive Date: 20121222
  Receipt Date: 20130111
  Transmission Date: 20140127
  Serious: Yes (Hospitalization, Congenital Anomaly, Other)
  Sender: FDA-Public Use
  Company Number: DE-TEVA-375645GER

PATIENT
  Age: 0 Year
  Sex: Female

DRUGS (5)
  1. DICLOFENAC [Suspect]
     Route: 064
  2. VENLAFAXIN [Concomitant]
     Route: 064
  3. HYPNOREX [Concomitant]
     Route: 064
  4. DOPEGYT [Concomitant]
     Route: 064
  5. INSULIN [Concomitant]
     Route: 065

REACTIONS (3)
  - Neonatal respiratory distress syndrome [Recovered/Resolved]
  - Atrial septal defect [Unknown]
  - Right ventricular hypertrophy [Recovering/Resolving]
